FAERS Safety Report 9788589 (Version 1)
Quarter: 2013Q4

REPORT INFORMATION
  Report Type: Spontaneous
  Country: CL (occurrence: CL)
  Receive Date: 20131230
  Receipt Date: 20131230
  Transmission Date: 20140711
  Serious: Yes (Other)
  Sender: FDA-Public Use
  Company Number: CL-PFIZER INC-2013371899

PATIENT
  Age: 77 Year
  Sex: Male

DRUGS (3)
  1. XALATAN [Suspect]
     Indication: GLAUCOMA
     Dosage: UNK
     Dates: start: 2008
  2. HYDRALAZINE HYDROCHLORIDE\ISOSORBIDE DINITRATE [Concomitant]
     Dosage: UNK
  3. PHENYTOIN SODIUM [Concomitant]
     Dosage: UNK

REACTIONS (3)
  - Intracranial aneurysm [Not Recovered/Not Resolved]
  - Bedridden [Not Recovered/Not Resolved]
  - Anaemia [Not Recovered/Not Resolved]
